FAERS Safety Report 9503388 (Version 1)
Quarter: 2013Q1

REPORT INFORMATION
  Report Type: Spontaneous
  Country: US (occurrence: None)
  Receive Date: 20130225
  Receipt Date: 20130225
  Transmission Date: 20140127
  Serious: No
  Sender: FDA-Public Use
  Company Number: 365360

PATIENT
  Age: 69 Year
  Sex: Male

DRUGS (4)
  1. VICTOZA [Suspect]
     Indication: TYPE 2 DIABETES MELLITUS
     Route: 058
     Dates: start: 2010
  2. ACTOS (PIOGLITAZONE HYDROCHLORIDE) [Concomitant]
  3. GLIPIZIDE (GLIPIZIDE) [Concomitant]
  4. METFORMIN (METFORMIN) [Concomitant]

REACTIONS (1)
  - Blood glucose increased [None]
